FAERS Safety Report 7627575-3 (Version None)
Quarter: 2011Q3

REPORT INFORMATION
  Report Type: 
  Country: None (occurrence: None)
  Receive Date: 20110721
  Receipt Date: 20110708
  Transmission Date: 20111222
  Serious: No
  Sender: FDA-Public Use
  Company Number: US-B.I. PHARMACEUTICALS,INC./RIDGEFIELD-2011-BP-17491BP

PATIENT
  Sex: Female

DRUGS (4)
  1. ESTRADERM 0.1MG [Concomitant]
     Indication: MENOPAUSE
     Dosage: PATCH FORM
     Route: 062
     Dates: start: 19950101
  2. SYMBICORT [Concomitant]
     Indication: ASTHMA
     Dosage: 4 PUF
     Route: 055
     Dates: start: 20020101
  3. MOBIC [Suspect]
     Indication: ARTHRITIS
     Dosage: 15 MG
     Route: 048
     Dates: start: 20110613
  4. NEXIUM [Concomitant]
     Indication: GASTROOESOPHAGEAL REFLUX DISEASE
     Dosage: 80 MG
     Route: 048
     Dates: start: 19950101

REACTIONS (1)
  - CONTUSION [None]
